FAERS Safety Report 20527129 (Version 1)
Quarter: 2022Q1

REPORT INFORMATION
  Report Type: Report from Study
  Country: US (occurrence: US)
  Receive Date: 20220228
  Receipt Date: 20220228
  Transmission Date: 20220423
  Serious: Yes (Hospitalization)
  Sender: FDA-Public Use
  Company Number: US-TAKEDA-2022TUS012308

PATIENT
  Sex: Male
  Weight: 74 kg

DRUGS (1)
  1. MOBOCERTINIB [Suspect]
     Active Substance: MOBOCERTINIB
     Indication: Non-small cell lung cancer
     Dosage: 40 MILLIGRAM
     Route: 065
     Dates: start: 202112

REACTIONS (6)
  - Anxiety [Recovering/Resolving]
  - Fatigue [Recovering/Resolving]
  - Illness [Recovering/Resolving]
  - Rash [Recovering/Resolving]
  - Asthenia [Unknown]
  - Dyspnoea [Unknown]
